FAERS Safety Report 5806376-2 (Version None)
Quarter: 2008Q3

REPORT INFORMATION
  Report Type: 
  Country: None (occurrence: None)
  Receive Date: 20080710
  Receipt Date: 20080702
  Transmission Date: 20090109
  Serious: Yes (Death, Other)
  Sender: FDA-Public Use
  Company Number: BE-AMGEN-UK268793

PATIENT
  Sex: Female
  Weight: 67 kg

DRUGS (16)
  1. KEPIVANCE [Suspect]
     Indication: MUCOSAL INFLAMMATION
     Route: 042
     Dates: start: 20080201, end: 20080224
  2. FLUCONAZOLE [Concomitant]
     Route: 048
     Dates: start: 20080220, end: 20080303
  3. ACYCLOVIR [Concomitant]
     Route: 042
     Dates: start: 20080220, end: 20080303
  4. OMEPRAZOLE [Concomitant]
     Route: 048
  5. MELPHALAN [Concomitant]
     Route: 042
     Dates: start: 20080221, end: 20080221
  6. HEPARIN [Concomitant]
     Dates: start: 20080220
  7. URSODIOL [Concomitant]
     Dates: start: 20080220
  8. NEUPOGEN [Concomitant]
  9. PENTAMIDINE [Concomitant]
  10. IMMUNOGLOBULINS [Concomitant]
     Route: 042
     Dates: start: 20080223, end: 20080226
  11. PERINDOPRIL ERBUMINE [Concomitant]
  12. ZOCOR [Concomitant]
  13. ALPRAZOLAM [Concomitant]
  14. ESCITALOPRAM [Concomitant]
  15. FUROSEMIDE [Concomitant]
  16. RADIATION THERAPY [Concomitant]

REACTIONS (5)
  - CARDIAC FAILURE [None]
  - CARDIAC FAILURE ACUTE [None]
  - CARDIOGENIC SHOCK [None]
  - RENAL FAILURE ACUTE [None]
  - SEPSIS [None]
